FAERS Safety Report 25250277 (Version 2)
Quarter: 2025Q3

REPORT INFORMATION
  Report Type: Spontaneous
  Country: EU (occurrence: EU)
  Receive Date: 20250429
  Receipt Date: 20250724
  Transmission Date: 20251020
  Serious: No
  Sender: PFIZER
  Company Number: EU-PFIZER INC-202500082031

PATIENT
  Sex: Female

DRUGS (1)
  1. SOMATROPIN [Suspect]
     Active Substance: SOMATROPIN

REACTIONS (1)
  - Device leakage [Unknown]
